FAERS Safety Report 5771983-2 (Version None)
Quarter: 2008Q2

REPORT INFORMATION
  Report Type: 
  Country: None (occurrence: None)
  Receive Date: 20080611
  Receipt Date: 20080606
  Transmission Date: 20081010
  Serious: Yes (Hospitalization)
  Sender: FDA-Public Use
  Company Number: 2008SP011060

PATIENT
  Age: 58 Year
  Sex: Male

DRUGS (8)
  1. RIBAVIRIN [Suspect]
     Indication: HEPATITIS C
     Dosage: PO
     Route: 048
     Dates: start: 20071219
  2. INTERFERON BETA (INTERFERON BETA) [Suspect]
     Indication: HEPATITIS C
     Dosage: IV
     Route: 042
     Dates: start: 20071219
  3. URSO 250 [Concomitant]
  4. PROMAC [Concomitant]
  5. ALPRAZOLAM [Concomitant]
  6. PAXIL [Concomitant]
  7. ROHYPNOL [Concomitant]
  8. MYSLEE [Concomitant]

REACTIONS (1)
  - HYPERTHYROIDISM [None]
